FAERS Safety Report 8555311-5 (Version None)
Quarter: 2012Q3

REPORT INFORMATION
  Report Type: 
  Country: None (occurrence: None)
  Receive Date: 20120731
  Receipt Date: 20120713
  Transmission Date: 20120928
  Serious: Yes (Hospitalization)
  Sender: FDA-Public Use
  Company Number: PHEH2012US013922

PATIENT
  Sex: Female

DRUGS (12)
  1. SANDOSTATIN LAR [Suspect]
     Indication: CARCINOID TUMOUR
     Dosage: 40 MG, QMO
     Route: 030
  2. IRON [Concomitant]
     Dosage: 320 MG, QD
  3. MAGNESIUM OXIDE [Concomitant]
  4. GLIPIZIDE [Concomitant]
     Indication: DIABETES MELLITUS
     Dosage: 10 MG, BID
     Route: 048
  5. LOSARTAN POTASSIUM [Concomitant]
     Indication: BLOOD PRESSURE
     Dosage: 50 MG, QD
     Route: 048
  6. CENTRUM [Concomitant]
  7. VITAMINS NOS [Concomitant]
  8. METFORMIN HYDROCHLORIDE [Concomitant]
     Indication: DIABETES MELLITUS
     Dosage: 1000 MG, BID
     Route: 048
  9. LASIX [Concomitant]
     Dosage: 20 MG, QID
     Route: 048
  10. METOPROLOL TARTRATE [Concomitant]
     Indication: BLOOD PRESSURE
     Dosage: 100 MG, QD
     Route: 048
  11. WARFARIN [Concomitant]
     Indication: BLOOD DISORDER
     Route: 048
  12. ATIVAN [Concomitant]
     Indication: SLEEP DISORDER
     Dosage: 1 MG, QD

REACTIONS (1)
  - POOR PERIPHERAL CIRCULATION [None]
